FAERS Safety Report 7604973-5 (Version None)
Quarter: 2011Q3

REPORT INFORMATION
  Report Type: 
  Country: None (occurrence: None)
  Receive Date: 20110713
  Receipt Date: 20110706
  Transmission Date: 20111222
  Serious: Yes (Hospitalization)
  Sender: FDA-Public Use
  Company Number: US-BIOGENIDEC-2011BI024836

PATIENT
  Age: 58 Year
  Sex: Female

DRUGS (1)
  1. TYSABRI [Suspect]
     Indication: MULTIPLE SCLEROSIS
     Route: 042
     Dates: start: 20091207

REACTIONS (6)
  - PANIC ATTACK [None]
  - MULTIPLE SCLEROSIS RELAPSE [None]
  - ANXIETY [None]
  - TYPE 2 DIABETES MELLITUS [None]
  - CENTRAL NERVOUS SYSTEM LESION [None]
  - HYPERTENSION [None]
